FAERS Safety Report 7969605-5 (Version None)
Quarter: 2011Q4

REPORT INFORMATION
  Report Type: 
  Country: None (occurrence: None)
  Receive Date: 20111212
  Receipt Date: 20111209
  Transmission Date: 20120403
  Serious: Yes (Death, Hospitalization, Other)
  Sender: FDA-Public Use
  Company Number: GR-PFIZER INC-2011276356

PATIENT
  Age: 82 Year
  Sex: Female

DRUGS (1)
  1. NEURONTIN [Suspect]
     Dosage: 300 MG
     Route: 048
     Dates: start: 20111001, end: 20111009

REACTIONS (9)
  - FALL [None]
  - PRURITUS [None]
  - KLEBSIELLA INFECTION [None]
  - ASTHENIA [None]
  - DIZZINESS [None]
  - FACE OEDEMA [None]
  - RASH [None]
  - PERICARDITIS [None]
  - RENAL FAILURE ACUTE [None]
